FAERS Safety Report 24435832 (Version 1)
Quarter: 2024Q4

REPORT INFORMATION
  Report Type: Spontaneous
  Country: US (occurrence: US)
  Receive Date: 20241015
  Receipt Date: 20241015
  Transmission Date: 20250114
  Serious: Yes (Hospitalization)
  Sender: GILEAD
  Company Number: US-GILEAD-2024-0690858

PATIENT
  Age: 64 Year
  Sex: Female

DRUGS (2)
  1. TRODELVY [Suspect]
     Active Substance: SACITUZUMAB GOVITECAN-HZIY
     Indication: Metaplastic breast carcinoma
     Dosage: 9 MG/KG ( ADMINISTERED 9MG/KG DOSE OF TRODELVY ON DAY 1)
     Route: 065
  2. TRODELVY [Suspect]
     Active Substance: SACITUZUMAB GOVITECAN-HZIY
     Dosage: ON DAY 8 THE DOSE WAS REDUCED BY 25% OF RECOMMENDED DOSE (7.5 MG/KG)
     Route: 065

REACTIONS (3)
  - Rash [Not Recovered/Not Resolved]
  - Pyrexia [Unknown]
  - Diarrhoea [Unknown]
